FAERS Safety Report 21148284 (Version 2)
Quarter: 2022Q3

REPORT INFORMATION
  Report Type: Spontaneous
  Country: US (occurrence: None)
  Receive Date: 20220729
  Receipt Date: 20220912
  Transmission Date: 20221027
  Serious: Yes (Death, Life-Threatening, Hospitalization, Other)
  Sender: FDA-Public Use
  Company Number: 2022A268537

PATIENT
  Age: 22118 Day
  Sex: Male
  Weight: 70.8 kg

DRUGS (25)
  1. EVUSHELD [Suspect]
     Active Substance: CILGAVIMAB\TIXAGEVIMAB
     Indication: Lung transplant
     Dosage: 150.0MG ONCE/SINGLE ADMINISTRATION
     Route: 030
     Dates: start: 20220204, end: 20220204
  2. EVUSHELD [Suspect]
     Active Substance: CILGAVIMAB\TIXAGEVIMAB
     Indication: Lung transplant
     Dosage: 150.0MG ONCE/SINGLE ADMINISTRATION
     Route: 030
     Dates: start: 20220209, end: 20220209
  3. OMEPRAZOLE [Suspect]
     Active Substance: OMEPRAZOLE
     Route: 065
  4. BUDESONIDE [Concomitant]
     Active Substance: BUDESONIDE
  5. PREDNISONE [Concomitant]
     Active Substance: PREDNISONE
     Dosage: 5 MG
  6. TACROLIMUS [Concomitant]
     Active Substance: TACROLIMUS
     Dosage: 1.5/1.0 MG
  7. URSODIOL [Concomitant]
     Active Substance: URSODIOL
     Dosage: 300 MG
  8. ACYCLOVIR [Concomitant]
     Active Substance: ACYCLOVIR
     Dosage: 400 MG
  9. AZITHROMYCIN [Concomitant]
     Active Substance: AZITHROMYCIN
     Dosage: 250 MG
  10. DEXILANT [Concomitant]
     Active Substance: DEXLANSOPRAZOLE
     Dosage: 60 MG
  11. OMEPRAZOLE [Concomitant]
     Active Substance: OMEPRAZOLE
     Dosage: 20 MG
  12. PRAVASTATIN [Concomitant]
     Active Substance: PRAVASTATIN
     Dosage: 20 MG
  13. SPIRONOLACTONE [Concomitant]
     Active Substance: SPIRONOLACTONE
     Dosage: 12.5 MG
  14. ACETAMINOPHEN [Concomitant]
     Active Substance: ACETAMINOPHEN
  15. OLANZAPINE [Concomitant]
     Active Substance: OLANZAPINE
  16. POTASSIUM [Concomitant]
     Active Substance: POTASSIUM
  17. ELIQUIS [Concomitant]
     Active Substance: APIXABAN
     Dosage: 5 MG
  18. LASIX [Concomitant]
     Active Substance: FUROSEMIDE
     Dosage: 5-20 MG
  19. POTASSIUM CITRATE [Concomitant]
     Active Substance: POTASSIUM CITRATE
     Dosage: 1 TAB
  20. VITAMINS [Concomitant]
     Active Substance: VITAMINS
     Dosage: 1 CAP
  21. COPPER GLUCONATE [Concomitant]
     Active Substance: COPPER GLUCONATE
     Dosage: 2 MG
  22. IRON [Concomitant]
     Active Substance: IRON
  23. MUPIROCIN [Concomitant]
     Active Substance: MUPIROCIN
     Dosage: 2 %
  24. FLUTICASONE [Concomitant]
     Active Substance: FLUTICASONE
     Dosage: 1 SPRAY
  25. LEVITRA [Concomitant]
     Active Substance: VARDENAFIL HYDROCHLORIDE
     Dosage: 20 MG

REACTIONS (29)
  - Endocarditis noninfective [Fatal]
  - Aortic thrombosis [Fatal]
  - Cerebral thrombosis [Fatal]
  - Endocarditis [Not Recovered/Not Resolved]
  - Splenic thrombosis [Not Recovered/Not Resolved]
  - Platelet count decreased [Unknown]
  - Splenic necrosis [Not Recovered/Not Resolved]
  - Dyspnoea [Fatal]
  - Chest discomfort [Unknown]
  - Malaise [Not Recovered/Not Resolved]
  - Fatigue [Not Recovered/Not Resolved]
  - Haemorrhage intracranial [Unknown]
  - Thrombocytopenia [Unknown]
  - Cyanosis [Unknown]
  - Sudden visual loss [Unknown]
  - Respiratory failure [Unknown]
  - Mental status changes [Unknown]
  - Vision blurred [Unknown]
  - Headache [Unknown]
  - Cough [Unknown]
  - Chest pain [Unknown]
  - Palpitations [Unknown]
  - Abdominal pain [Unknown]
  - Coordination abnormal [Unknown]
  - Dysarthria [Unknown]
  - Thrombosis [Unknown]
  - Adrenal thrombosis [Unknown]
  - Coronary artery thrombosis [Unknown]
  - Adverse event [Fatal]

NARRATIVE: CASE EVENT DATE: 20220204
